FAERS Safety Report 10538850 (Version 2)
Quarter: 2014Q4

REPORT INFORMATION
  Report Type: Spontaneous
  Country: US (occurrence: US)
  Receive Date: 20141023
  Receipt Date: 20141103
  Transmission Date: 20150529
  Serious: Yes (Death)
  Sender: FDA-Public Use
  Company Number: US-ACTELION-A-NJ2014-106788

PATIENT
  Age: 80 Year
  Sex: Female

DRUGS (12)
  1. METOPROLOL [Concomitant]
     Active Substance: METOPROLOL
  2. MEGESTROL [Concomitant]
     Active Substance: MEGESTROL
  3. LOSARTAN [Concomitant]
     Active Substance: LOSARTAN
  4. SILDENAFIL. [Concomitant]
     Active Substance: SILDENAFIL
  5. NEXIUM [Concomitant]
     Active Substance: ESOMEPRAZOLE MAGNESIUM
  6. VELETRI [Suspect]
     Active Substance: EPOPROSTENOL
     Indication: PULMONARY ARTERIAL HYPERTENSION
     Route: 042
  7. VITAMIN D [Concomitant]
     Active Substance: CHOLECALCIFEROL
  8. CARAFATE [Concomitant]
     Active Substance: SUCRALFATE
  9. AMLODIPINE [Concomitant]
     Active Substance: AMLODIPINE BESYLATE
  10. OPSUMIT [Suspect]
     Active Substance: MACITENTAN
     Indication: PULMONARY ARTERIAL HYPERTENSION
     Dosage: 10 MG, QD
     Route: 048
     Dates: start: 201404, end: 20141003
  11. FOLIC ACID. [Concomitant]
     Active Substance: FOLIC ACID
  12. ATORVASTATIN [Concomitant]
     Active Substance: ATORVASTATIN

REACTIONS (2)
  - Disease progression [Fatal]
  - Pulmonary arterial hypertension [Fatal]

NARRATIVE: CASE EVENT DATE: 20141003
